FAERS Safety Report 8419360 (Version 2)
Quarter: 2014Q2

REPORT INFORMATION
  Report Type: Spontaneous
  Country: DE (occurrence: DE)
  Receive Date: 20120221
  Receipt Date: 20140515
  Transmission Date: 20141212
  Serious: Yes (Congenital Anomaly, Other)
  Sender: FDA-Public Use
  Company Number: PHHY2012DE012721

PATIENT
  Sex: 0

DRUGS (6)
  1. MYCOPHENOLATE [Suspect]
     Dosage: (MATERNAL DOSE: 1.44G/DAY)
     Route: 064
  2. NAPROXEN [Suspect]
     Route: 064
  3. PREDNISOLONE [Suspect]
     Route: 064
  4. COLCHICINE [Suspect]
     Route: 064
  5. VALACICLOVIR [Suspect]
     Route: 064
  6. ABATACEPT [Suspect]
     Route: 064

REACTIONS (4)
  - Meningocele [Unknown]
  - Brain malformation [Unknown]
  - Premature baby [Unknown]
  - Foetal exposure during pregnancy [Unknown]
